FAERS Safety Report 6972912-6 (Version None)
Quarter: 2010Q3

REPORT INFORMATION
  Report Type: 
  Country: None (occurrence: None)
  Receive Date: 20100909
  Receipt Date: 20100706
  Transmission Date: 20110219
  Serious: No
  Sender: FDA-Public Use
  Company Number: US-KINGPHARMUSA00001-K201000850

PATIENT
  Age: 32 Year
  Sex: Male
  Weight: 74.83 kg

DRUGS (3)
  1. EMBEDA [Suspect]
     Indication: HEADACHE
     Dosage: 20 MG, QHS
     Route: 048
     Dates: start: 20100617
  2. EMBEDA [Suspect]
     Indication: MENINGITIS
  3. ALBUTEROL [Concomitant]
     Indication: ASTHMA
     Dosage: UNK

REACTIONS (7)
  - ABDOMINAL DISCOMFORT [None]
  - DRY THROAT [None]
  - EYE PRURITUS [None]
  - INSOMNIA [None]
  - MIGRAINE [None]
  - NAUSEA [None]
  - NIGHT SWEATS [None]
